FAERS Safety Report 11667860 (Version 1)
Quarter: 2015Q4

REPORT INFORMATION
  Report Type: Spontaneous
  Country: US (occurrence: US)
  Receive Date: 20151027
  Receipt Date: 20151027
  Transmission Date: 20160304
  Serious: Yes (Hospitalization, Other)
  Sender: FDA-Public Use
  Company Number: US-ASTRAZENECA-2015SF02061

PATIENT
  Age: 24644 Day
  Sex: Male
  Weight: 63.5 kg

DRUGS (2)
  1. METOPROLOL TARTRATE. [Suspect]
     Active Substance: METOPROLOL TARTRATE
     Indication: SUPRAVENTRICULAR TACHYCARDIA
     Route: 048
     Dates: start: 20150320
  2. CRESTOR [Suspect]
     Active Substance: ROSUVASTATIN CALCIUM
     Indication: BLOOD CHOLESTEROL ABNORMAL
     Route: 048
     Dates: start: 20150203, end: 20150301

REACTIONS (11)
  - Gait disturbance [Unknown]
  - Aggression [Unknown]
  - Headache [Unknown]
  - Depression [Unknown]
  - Thrombocytopenic purpura [Not Recovered/Not Resolved]
  - Supraventricular tachycardia [Unknown]
  - Speech disorder [Unknown]
  - Immune system disorder [Not Recovered/Not Resolved]
  - Drug dose omission [Unknown]
  - Back pain [Unknown]
  - Myalgia [Unknown]

NARRATIVE: CASE EVENT DATE: 20150228
